FAERS Safety Report 6462924-3 (Version None)
Quarter: 2009Q4

REPORT INFORMATION
  Report Type: 
  Country: None (occurrence: None)
  Receive Date: 20091130
  Receipt Date: 20091024
  Transmission Date: 20100525
  Serious: No
  Sender: FDA-Public Use
  Company Number: PR-AMGEN-KDL371173

PATIENT
  Sex: Female

DRUGS (1)
  1. ENBREL [Suspect]
     Indication: RHEUMATOID ARTHRITIS
     Route: 058

REACTIONS (2)
  - FATIGUE [None]
  - NASOPHARYNGITIS [None]
